FAERS Safety Report 13406049 (Version 1)
Quarter: 2017Q2

REPORT INFORMATION
  Report Type: Spontaneous
  Country: BE (occurrence: BE)
  Receive Date: 20170405
  Receipt Date: 20170405
  Transmission Date: 20170830
  Serious: Yes (Other)
  Sender: FDA-Public Use
  Company Number: BE-ALVOGEN-2017-ALVOGEN-091866

PATIENT

DRUGS (2)
  1. FENOTEROL/IPRATROPIUM BROMIDE [Interacting]
     Active Substance: FENOTEROL
     Indication: PRODUCT USED FOR UNKNOWN INDICATION
  2. ATENOLOL. [Suspect]
     Active Substance: ATENOLOL
     Indication: PRODUCT USED FOR UNKNOWN INDICATION

REACTIONS (3)
  - Hypotension [Unknown]
  - Asthma [Unknown]
  - Drug interaction [Unknown]
